FAERS Safety Report 21252326 (Version 1)
Quarter: 2022Q3

REPORT INFORMATION
  Report Type: Spontaneous
  Country: CN (occurrence: CN)
  Receive Date: 20220825
  Receipt Date: 20220825
  Transmission Date: 20221027
  Serious: Yes (Death, Hospitalization, Other)
  Sender: FDA-Public Use
  Company Number: CN-SUN PHARMACEUTICAL INDUSTRIES LTD-2022R1-351870

PATIENT
  Age: 22 Year
  Sex: Male

DRUGS (4)
  1. PREDNISONE [Suspect]
     Active Substance: PREDNISONE
     Indication: Hydrocephalus
     Dosage: 100 MILLIGRAM DAY 1-5, Q3W
     Route: 048
  2. VINCRISTINE [Suspect]
     Active Substance: VINCRISTINE
     Indication: Hydrocephalus
     Dosage: 1.8 MILLIGRAM, 1.2 MG/M2, DAY 1
     Route: 065
  3. CYCLOPHOSPHAMIDE [Suspect]
     Active Substance: CYCLOPHOSPHAMIDE
     Indication: Hydrocephalus
     Dosage: 1.2 G, 0.8 G/M2, DAY 1
     Route: 065
  4. EPIRUBICIN [Suspect]
     Active Substance: EPIRUBICIN
     Indication: Hydrocephalus
     Dosage: 100 MILLIGRAM, 60 MG/M2, DAY 1
     Route: 065

REACTIONS (2)
  - Drug ineffective [Fatal]
  - Tumour invasion [Fatal]
